FAERS Safety Report 20075531 (Version 4)
Quarter: 2022Q1

REPORT INFORMATION
  Report Type: Report from Study
  Country: US (occurrence: US)
  Receive Date: 20211116
  Receipt Date: 20220308
  Transmission Date: 20220423
  Serious: No
  Sender: FDA-Public Use
  Company Number: US-NOVARTISTESTPH-NVSC2021US262193

PATIENT
  Age: 82 Year
  Sex: Male

DRUGS (1)
  1. TABRECTA [Suspect]
     Active Substance: CAPMATINIB
     Indication: Product used for unknown indication
     Dosage: UNK
     Route: 048
     Dates: start: 20211006

REACTIONS (4)
  - Dysphonia [Unknown]
  - Hypoaesthesia [Unknown]
  - Cough [Unknown]
  - Paraesthesia [Unknown]

NARRATIVE: CASE EVENT DATE: 20211113
